FAERS Safety Report 7245134-1 (Version None)
Quarter: 2011Q1

REPORT INFORMATION
  Report Type: 
  Country: None (occurrence: None)
  Receive Date: 20110126
  Receipt Date: 20110117
  Transmission Date: 20110831
  Serious: Yes (Other)
  Sender: FDA-Public Use
  Company Number: US-NAPPMUNDI-USA-2011-0062411

PATIENT
  Sex: Male

DRUGS (1)
  1. OXYCONTIN [Suspect]
     Indication: PAIN

REACTIONS (8)
  - INADEQUATE ANALGESIA [None]
  - ABNORMAL BEHAVIOUR [None]
  - FEELING ABNORMAL [None]
  - PARANOIA [None]
  - IMPAIRED DRIVING ABILITY [None]
  - SUICIDAL IDEATION [None]
  - MEMORY IMPAIRMENT [None]
  - COMMUNICATION DISORDER [None]
